FAERS Safety Report 18097289 (Version 1)
Quarter: 2020Q3

REPORT INFORMATION
  Report Type: Report from Study
  Country: FR (occurrence: FR)
  Receive Date: 20200731
  Receipt Date: 20200731
  Transmission Date: 20201103
  Serious: Yes (Other)
  Sender: FDA-Public Use
  Company Number: NVSC2020FR210785

PATIENT
  Age: 77 Year
  Sex: Female

DRUGS (4)
  1. BYL719 [Suspect]
     Active Substance: ALPELISIB
     Indication: BREAST CANCER
     Dosage: 200 MG, QD
     Route: 048
  2. FASLODEX [Concomitant]
     Active Substance: FULVESTRANT
     Indication: PRODUCT USED FOR UNKNOWN INDICATION
     Dosage: UNK
     Route: 065
     Dates: start: 2016
  3. EFFERALGAN [Concomitant]
     Active Substance: ACETAMINOPHEN
     Indication: PRODUCT USED FOR UNKNOWN INDICATION
     Dosage: 2000 MG
     Route: 065
     Dates: start: 2017
  4. BYL719 [Suspect]
     Active Substance: ALPELISIB
     Dosage: 100 MG, QD
     Route: 048

REACTIONS (2)
  - Gastrointestinal toxicity [Unknown]
  - Metastases to liver [Unknown]
